FAERS Safety Report 4636536-8 (Version None)
Quarter: 2005Q2

REPORT INFORMATION
  Report Type: 
  Country: None (occurrence: None)
  Receive Date: 20050414
  Receipt Date: 20050414
  Transmission Date: 20051028
  Serious: Yes (Life-Threatening, Hospitalization, Disabling)
  Sender: FDA-Public Use
  Company Number: None

PATIENT
  Age: 27 Year
  Sex: Female
  Weight: 76.6579 kg

DRUGS (2)
  1. SEASONALE [Suspect]
     Indication: CONTRACEPTION
     Dosage: 1 TAB   Q DAY   ORAL
     Route: 048
     Dates: start: 20041124, end: 20050324
  2. PHENTERMINE [Suspect]
     Indication: WEIGHT CONTROL
     Dosage: 1 TAB   Q AM  ORAL
     Route: 048
     Dates: start: 20041124, end: 20050218

REACTIONS (2)
  - CEREBROVASCULAR ACCIDENT [None]
  - HEADACHE [None]
